FAERS Safety Report 18206558 (Version 2)
Quarter: 2023Q2

REPORT INFORMATION
  Report Type: Report from Study
  Country: US (occurrence: US)
  Receive Date: 20200828
  Receipt Date: 20230524
  Transmission Date: 20230722
  Serious: No
  Sender: FDA-Public Use
  Company Number: US-KYOWAKIRIN-2020BKK013709

PATIENT

DRUGS (1)
  1. BUROSUMAB [Suspect]
     Active Substance: BUROSUMAB
     Indication: Product used for unknown indication
     Dosage: 50 MG, 1X/4 WEEKS
     Route: 065

REACTIONS (3)
  - Blood phosphorus decreased [Unknown]
  - Pregnancy [Unknown]
  - Exposure during pregnancy [Unknown]
